FAERS Safety Report 22302368 (Version 1)
Quarter: 2023Q2

REPORT INFORMATION
  Report Type: Spontaneous
  Country: IL (occurrence: None)
  Receive Date: 20230510
  Receipt Date: 20230510
  Transmission Date: 20230722
  Serious: Yes (Other)
  Sender: FDA-Public Use
  Company Number: IL-ROCHE-3345030

PATIENT
  Age: 65 Year
  Sex: Male

DRUGS (3)
  1. MABTHERA [Suspect]
     Active Substance: RITUXIMAB
     Indication: Marginal zone lymphoma
     Route: 041
     Dates: start: 20220206
  2. BENDAMUSTINE [Suspect]
     Active Substance: BENDAMUSTINE
     Indication: Marginal zone lymphoma
     Route: 042
     Dates: start: 20220206
  3. ALLOPURINOL [Concomitant]
     Active Substance: ALLOPURINOL
     Route: 048

REACTIONS (8)
  - Peripheral swelling [Recovered/Resolved]
  - Purpura [Unknown]
  - Renal impairment [Recovered/Resolved]
  - Pyrexia [Unknown]
  - Leukocytosis [Unknown]
  - Atelectasis [Unknown]
  - Neuropathy peripheral [Not Recovered/Not Resolved]
  - Swelling face [Unknown]

NARRATIVE: CASE EVENT DATE: 20220227
